FAERS Safety Report 5382254-0 (Version None)
Quarter: 2007Q3

REPORT INFORMATION
  Report Type: 
  Country: None (occurrence: None)
  Receive Date: 20070709
  Receipt Date: 20070627
  Transmission Date: 20080115
  Serious: Yes (Other)
  Sender: FDA-Public Use
  Company Number: GB-PFIZER INC-2007051171

PATIENT
  Age: 58 Year
  Sex: Male
  Weight: 73 kg

DRUGS (3)
  1. PHENYTOIN SODIUM [Suspect]
     Indication: MENINGIOMA
     Route: 048
  2. CARBAMAZEPINE [Suspect]
     Dates: start: 20070101, end: 20070101
  3. PIRITON [Concomitant]

REACTIONS (11)
  - BLOOD CHOLESTEROL INCREASED [None]
  - BLOOD PHOSPHORUS INCREASED [None]
  - DRY SKIN [None]
  - DYSPNOEA [None]
  - DYSPNOEA EXERTIONAL [None]
  - GAMMA-GLUTAMYLTRANSFERASE INCREASED [None]
  - MUSCLE ATROPHY [None]
  - PARAESTHESIA [None]
  - RASH [None]
  - URTICARIA [None]
  - WEIGHT DECREASED [None]
